FAERS Safety Report 22657863 (Version 1)
Quarter: 2023Q2

REPORT INFORMATION
  Report Type: Spontaneous
  Country: US (occurrence: US)
  Receive Date: 20230630
  Receipt Date: 20230630
  Transmission Date: 20230722
  Serious: No
  Sender: FDA-Public Use
  Company Number: US-EPICPHARMA-US-2023EPCPC01052

PATIENT
  Sex: Male
  Weight: 91 kg

DRUGS (1)
  1. CHOLESTYRAMINE [Suspect]
     Active Substance: CHOLESTYRAMINE
     Indication: Faeces soft
     Route: 065
     Dates: start: 20230613

REACTIONS (3)
  - Product solubility abnormal [Unknown]
  - Liquid product physical issue [Unknown]
  - Product use in unapproved indication [Unknown]
